FAERS Safety Report 19004314 (Version 1)
Quarter: 2021Q1

REPORT INFORMATION
  Report Type: Spontaneous
  Country: DE (occurrence: DE)
  Receive Date: 20210312
  Receipt Date: 20210312
  Transmission Date: 20210420
  Serious: Yes (Life-Threatening, Hospitalization, Other)
  Sender: FDA-Public Use
  Company Number: DE-PFIZER INC-2021261569

PATIENT
  Age: 54 Year
  Sex: Female

DRUGS (2)
  1. AMLODIPINE BESILATE [Suspect]
     Active Substance: AMLODIPINE BESYLATE
     Indication: SUICIDE ATTEMPT
     Dosage: 500 MG
     Route: 048
  2. BISOPROLOL [Suspect]
     Active Substance: BISOPROLOL
     Indication: SUICIDE ATTEMPT
     Dosage: 250 MG
     Route: 048

REACTIONS (11)
  - Hypothermia [Unknown]
  - Toxicity to various agents [Recovering/Resolving]
  - Renal impairment [Recovering/Resolving]
  - Intentional overdose [Recovering/Resolving]
  - Respiratory failure [Unknown]
  - Heart rate decreased [Unknown]
  - Haemodynamic instability [Recovered/Resolved]
  - Cardiogenic shock [Recovered/Resolved]
  - Blood pressure systolic decreased [Unknown]
  - Pulseless electrical activity [Recovered/Resolved]
  - Cardiac arrest [Recovering/Resolving]
